FAERS Safety Report 15130124 (Version 1)
Quarter: 2018Q3

REPORT INFORMATION
  Report Type: Spontaneous
  Country: US (occurrence: US)
  Receive Date: 20180615
  Receipt Date: 20180615
  Transmission Date: 20181010
  Serious: Yes (Other)
  Sender: FDA-Public Use
  Company Number: None

PATIENT
  Age: 28 Year
  Sex: Female
  Weight: 93.6 kg

DRUGS (7)
  1. APPLE CIDER VINEGAR [Concomitant]
     Active Substance: APPLE CIDER VINEGAR
  2. FLUTICASONE. [Suspect]
     Active Substance: FLUTICASONE
     Indication: SEASONAL ALLERGY
     Dosage: ?          QUANTITY:2 SPRAY(S);?
     Route: 045
     Dates: start: 20180507, end: 20180610
  3. FLUOXETINE [Concomitant]
     Active Substance: FLUOXETINE HYDROCHLORIDE
  4. AMITRIPTYLINE [Concomitant]
     Active Substance: AMITRIPTYLINE
  5. PROPRANALOL [Concomitant]
     Active Substance: PROPRANOLOL HYDROCHLORIDE
  6. ESTRADIOL. [Concomitant]
     Active Substance: ESTRADIOL
  7. ALPRAXOLAM [Concomitant]

REACTIONS (9)
  - Feeling abnormal [None]
  - Headache [None]
  - Pain [None]
  - Dizziness [None]
  - Off label use [None]
  - Sinusitis [None]
  - Ear infection [None]
  - Impaired work ability [None]
  - Product quality issue [None]

NARRATIVE: CASE EVENT DATE: 20180507
